FAERS Safety Report 5329430-0 (Version None)
Quarter: 2007Q2

REPORT INFORMATION
  Report Type: 
  Country: None (occurrence: None)
  Receive Date: 20070220
  Receipt Date: 20060123
  Transmission Date: 20071010
  Serious: Yes (Other)
  Sender: FDA-Public Use
  Company Number: HQWYE567330JAN06

PATIENT
  Age: 3 Year
  Sex: Female
  Weight: 16.34 kg

DRUGS (1)
  1. CHILDREN'S ADVIL [Suspect]
     Indication: PYREXIA
     Dosage: 2 TABLET 1X PER 1 DAY, ORAL
     Route: 048
     Dates: start: 20060123, end: 20060123

REACTIONS (2)
  - ORAL DISCOMFORT [None]
  - SCREAMING [None]
